FAERS Safety Report 4961416-8 (Version None)
Quarter: 2006Q2

REPORT INFORMATION
  Report Type: 
  Country: None (occurrence: None)
  Receive Date: 20060403
  Receipt Date: 20060117
  Transmission Date: 20061013
  Serious: Yes (Death, Hospitalization)
  Sender: FDA-Public Use
  Company Number: US-MERCK-0601USA02163

PATIENT
  Age: 66 Year
  Sex: Female
  Weight: 100 kg

DRUGS (2)
  1. VIOXX [Suspect]
     Indication: ARTHRITIS
     Route: 048
     Dates: start: 20040102, end: 20040813
  2. TAMOXIFEN CITRATE [Concomitant]
     Route: 065

REACTIONS (13)
  - ACUTE MYOCARDIAL INFARCTION [None]
  - ARTERIOSCLEROSIS [None]
  - CARDIAC ARREST [None]
  - CARDIAC FAILURE CONGESTIVE [None]
  - CARDIOGENIC SHOCK [None]
  - DIASTOLIC DYSFUNCTION [None]
  - HYPERTENSION [None]
  - LOW CARDIAC OUTPUT SYNDROME [None]
  - PNEUMONIA [None]
  - PULMONARY HYPERTENSION [None]
  - RENAL FAILURE ACUTE [None]
  - SUPRAVENTRICULAR TACHYCARDIA [None]
  - VENOUS OCCLUSION [None]
